FAERS Safety Report 14846799 (Version 1)
Quarter: 2018Q2

REPORT INFORMATION
  Report Type: Spontaneous
  Country: US (occurrence: US)
  Receive Date: 20180419
  Receipt Date: 20180419
  Transmission Date: 20180711
  Serious: Yes (Hospitalization)
  Sender: FDA-Public Use
  Company Number: None

PATIENT
  Age: 1 Year
  Sex: Female

DRUGS (4)
  1. EPOGEN [Suspect]
     Active Substance: ERYTHROPOIETIN
     Indication: NEOPLASM MALIGNANT
     Route: 058
  2. SODIUM CITRATE/CITRIC ACID [Concomitant]
  3. RENVELA [Concomitant]
     Active Substance: SEVELAMER CARBONATE
  4. PHOSLYRA [Concomitant]
     Active Substance: CALCIUM ACETATE

REACTIONS (1)
  - Hospitalisation [None]

NARRATIVE: CASE EVENT DATE: 20180417
